FAERS Safety Report 8245235-5 (Version None)
Quarter: 2012Q1

REPORT INFORMATION
  Report Type: 
  Country: None (occurrence: None)
  Receive Date: 20120329
  Receipt Date: 20120329
  Transmission Date: 20120608
  Serious: Yes (Death)
  Sender: FDA-Public Use
  Company Number: ES-BAYER-2012-030380

PATIENT
  Age: 71 Year
  Sex: Male

DRUGS (6)
  1. CLOPIDOGREL [Interacting]
     Dosage: UNK
     Route: 048
     Dates: start: 20100301, end: 20111001
  2. MYCOPHENOLIC ACID [Concomitant]
     Indication: RENAL TRANSPLANT
     Dosage: UNK
     Route: 048
     Dates: start: 20110601, end: 20111003
  3. TACROLIMUS [Concomitant]
     Indication: RENAL TRANSPLANT
     Dosage: UNK
     Route: 048
     Dates: start: 20110601, end: 20111003
  4. FUROSEMIDA [Concomitant]
     Dosage: UNK
     Route: 048
     Dates: start: 20110601, end: 20111003
  5. PREDNISONE TAB [Concomitant]
     Indication: RENAL TRANSPLANT
     Dosage: UNK
     Route: 048
     Dates: start: 20110601, end: 20111003
  6. ASPIRIN [Suspect]
     Indication: CARDIOVASCULAR EVENT PROPHYLAXIS
     Dosage: UNK
     Route: 048
     Dates: start: 20100301, end: 20111001

REACTIONS (1)
  - UPPER GASTROINTESTINAL HAEMORRHAGE [None]
